FAERS Safety Report 4597825-9 (Version None)
Quarter: 2005Q1

REPORT INFORMATION
  Report Type: 
  Country: None (occurrence: None)
  Receive Date: 20050303
  Receipt Date: 20050225
  Transmission Date: 20050727
  Serious: Yes (Death, Life-Threatening, Other)
  Sender: FDA-Public Use
  Company Number: FR-MERCK-0502FRA00084

PATIENT
  Age: 79 Year
  Sex: Male

DRUGS (6)
  1. PRIMAXIN [Suspect]
     Indication: SEPSIS
     Route: 042
     Dates: start: 20050102, end: 20050106
  2. OFLOXACIN [Suspect]
     Indication: SEPSIS
     Route: 042
     Dates: start: 20041230, end: 20050108
  3. CLOXACILLIN [Suspect]
     Indication: SEPSIS
     Route: 042
     Dates: start: 20041230, end: 20050105
  4. PIPERACILLIN SODIUM AND TAZOBACTAM SODIUM [Suspect]
     Indication: SEPSIS
     Route: 042
     Dates: start: 20041226, end: 20050105
  5. FLUCONAZOLE [Suspect]
     Indication: SEPSIS
     Route: 042
     Dates: start: 20041226, end: 20050108
  6. LINEZOLID [Suspect]
     Indication: SEPSIS
     Route: 042
     Dates: start: 20050106, end: 20050117

REACTIONS (5)
  - CARDIAC FAILURE CONGESTIVE [None]
  - CARDIO-RESPIRATORY ARREST [None]
  - ISCHAEMIC STROKE [None]
  - PANCYTOPENIA [None]
  - PULMONARY HAEMORRHAGE [None]
